FAERS Safety Report 8171171 (Version 8)
Quarter: 2021Q4

REPORT INFORMATION
  Report Type: Spontaneous
  Country: GB (occurrence: GB)
  Receive Date: 20111006
  Receipt Date: 20211203
  Transmission Date: 20220303
  Serious: Yes (Life-Threatening, Hospitalization, Disabling, Other)
  Sender: FDA-Public Use
  Company Number: GB-MHRA-EYC-00070456

PATIENT
  Age: 31 Year
  Sex: Female
  Weight: 63.5 kg

DRUGS (60)
  1. TRAMADOL HYDROCHLORIDE [Interacting]
     Active Substance: TRAMADOL HYDROCHLORIDE
     Indication: Neck pain
     Dosage: 100 MILLIGRAM, 1/DAY
     Route: 048
     Dates: start: 20081201, end: 20101210
  2. TRAMADOL HYDROCHLORIDE [Interacting]
     Active Substance: TRAMADOL HYDROCHLORIDE
     Indication: Analgesic therapy
     Dosage: 100 MG, 4/DAY
     Route: 065
     Dates: start: 20080722
  3. TRAMADOL HYDROCHLORIDE [Interacting]
     Active Substance: TRAMADOL HYDROCHLORIDE
     Indication: Back pain
     Dosage: 5 MILLIGRAM, 1/DAY
     Route: 044
     Dates: start: 1995, end: 1995
  4. TRAMADOL HYDROCHLORIDE [Interacting]
     Active Substance: TRAMADOL HYDROCHLORIDE
     Indication: Oculogyric crisis
     Dosage: 5 MILLIGRAM, 1/DAY
     Route: 048
     Dates: start: 1995, end: 1996
  5. TRAMADOL HYDROCHLORIDE [Interacting]
     Active Substance: TRAMADOL HYDROCHLORIDE
     Dosage: UNK
     Route: 048
     Dates: start: 20080722
  6. TRAMADOL HYDROCHLORIDE [Interacting]
     Active Substance: TRAMADOL HYDROCHLORIDE
     Dosage: 8 MILLIGRAM, 1/DAY
     Route: 065
  7. TRAMADOL HYDROCHLORIDE [Interacting]
     Active Substance: TRAMADOL HYDROCHLORIDE
     Dosage: UNK
     Route: 065
     Dates: start: 20081201, end: 20101210
  8. TRAMADOL HYDROCHLORIDE [Interacting]
     Active Substance: TRAMADOL HYDROCHLORIDE
     Dosage: 4 CYCLICAL, 1/DAY
     Route: 065
     Dates: start: 2008, end: 2009
  9. TRAMADOL HYDROCHLORIDE [Interacting]
     Active Substance: TRAMADOL HYDROCHLORIDE
     Dosage: 100 MILLIGRAM, 4/DAY
     Route: 065
     Dates: start: 20080722
  10. TRAMADOL HYDROCHLORIDE [Interacting]
     Active Substance: TRAMADOL HYDROCHLORIDE
     Dosage: 5 MILLIGRAM, 1/DAY
     Route: 065
     Dates: start: 1995, end: 1996
  11. CLONAZEPAM [Interacting]
     Active Substance: CLONAZEPAM
     Indication: Sedation
     Dosage: THERAPY END FLAG: DRUG NO LONGER ADMINISTERED
     Route: 048
     Dates: start: 20110224, end: 20110410
  12. LORAZEPAM [Interacting]
     Active Substance: LORAZEPAM
     Indication: Sedation
     Dosage: 1 MILLIGRAM, 4/DAY
     Route: 048
     Dates: start: 20110523, end: 20110627
  13. LORAZEPAM [Interacting]
     Active Substance: LORAZEPAM
     Dosage: 4 MILLIGRAM, 4/DAY
     Route: 048
     Dates: start: 20110224, end: 20110410
  14. LORAZEPAM [Interacting]
     Active Substance: LORAZEPAM
     Dosage: 1 MILLIGRAM, 1/DAY
     Route: 048
     Dates: start: 20110725
  15. LORAZEPAM [Interacting]
     Active Substance: LORAZEPAM
     Dosage: 4 MILLIGRAM, 1/DAY
     Route: 048
     Dates: start: 20110202, end: 20110410
  16. LORAZEPAM [Interacting]
     Active Substance: LORAZEPAM
     Dosage: 4 MILLIGRAM
     Route: 048
     Dates: start: 20110523, end: 20110627
  17. LORAZEPAM [Interacting]
     Active Substance: LORAZEPAM
     Dosage: 4 MILLIGRAM
     Route: 048
     Dates: start: 20110224, end: 20110410
  18. MIRTAZAPINE [Interacting]
     Active Substance: MIRTAZAPINE
     Indication: Depression
     Dosage: 30 MILLIGRAM, 1/DAY
     Route: 048
     Dates: start: 20100923, end: 20101108
  19. MIRTAZAPINE [Interacting]
     Active Substance: MIRTAZAPINE
     Indication: Psychotic disorder
     Dosage: 30 MILLIGRAM, 1/DAY
     Route: 048
     Dates: start: 20101007, end: 20101012
  20. MIRTAZAPINE [Interacting]
     Active Substance: MIRTAZAPINE
     Indication: Depression
     Dosage: 30 MILLIGRAM, 1/DAY
     Route: 065
     Dates: start: 20110224, end: 20110506
  21. PROCYCLIDINE [Interacting]
     Active Substance: PROCYCLIDINE
     Indication: Extrapyramidal disorder
     Dosage: 15 MG, QD, 5 MG, TID
     Route: 048
     Dates: start: 20110503, end: 20110510
  22. PROCYCLIDINE [Interacting]
     Active Substance: PROCYCLIDINE
     Indication: Oculogyric crisis
     Dosage: 5 MILLIGRAM, 1/DAY
     Route: 048
     Dates: start: 1995, end: 1995
  23. PROCYCLIDINE [Interacting]
     Active Substance: PROCYCLIDINE
     Indication: Extrapyramidal disorder
     Dosage: 20 MILLIGRAM, 1/DAY
     Route: 048
     Dates: start: 20110324, end: 20110506
  24. PROCYCLIDINE [Interacting]
     Active Substance: PROCYCLIDINE
     Dosage: UNK
     Route: 065
     Dates: start: 20110415
  25. PROCYCLIDINE [Interacting]
     Active Substance: PROCYCLIDINE
     Dosage: 5 MILLIGRAM, 1/DAY
     Route: 048
     Dates: start: 1995, end: 1996
  26. QUETIAPINE [Interacting]
     Active Substance: QUETIAPINE
     Indication: Psychotic disorder
     Dosage: 300 MG, UNK
     Route: 048
     Dates: start: 20110224, end: 20110506
  27. QUETIAPINE [Interacting]
     Active Substance: QUETIAPINE
     Indication: Psychotic disorder
     Dosage: UNK
     Route: 048
     Dates: start: 19990801, end: 20110706
  28. PAROXETINE HYDROCHLORIDE [Interacting]
     Active Substance: PAROXETINE HYDROCHLORIDE
     Indication: Product used for unknown indication
     Dosage: 20MG THREE TIMES PER DAY
     Route: 048
     Dates: start: 19990801, end: 201105
  29. PAROXETINE HYDROCHLORIDE [Interacting]
     Active Substance: PAROXETINE HYDROCHLORIDE
     Indication: Depression
     Dosage: 20 MG (2 PER DAY)
     Route: 048
     Dates: start: 201105, end: 20110706
  30. PAROXETINE HYDROCHLORIDE [Interacting]
     Active Substance: PAROXETINE HYDROCHLORIDE
     Dosage: 1 DOSAGE FORM, 1/DAY
     Route: 065
     Dates: start: 200812, end: 20101210
  31. PAROXETINE HYDROCHLORIDE [Interacting]
     Active Substance: PAROXETINE HYDROCHLORIDE
     Dosage: UNK
     Route: 048
     Dates: start: 201012
  32. PAROXETINE HYDROCHLORIDE [Interacting]
     Active Substance: PAROXETINE HYDROCHLORIDE
     Dosage: INTERRUPTED
     Route: 048
     Dates: start: 1997, end: 201105
  33. PAROXETINE HYDROCHLORIDE [Interacting]
     Active Substance: PAROXETINE HYDROCHLORIDE
     Dosage: DRUG WITHDRAWN
     Route: 048
     Dates: start: 1999, end: 201105
  34. AMITRIPTYLINE [Interacting]
     Active Substance: AMITRIPTYLINE
     Indication: Muscle spasms
     Dosage: 25MG AT NIGHT
     Route: 065
     Dates: start: 20110810
  35. AMITRIPTYLINE [Interacting]
     Active Substance: AMITRIPTYLINE
     Indication: Neuralgia
  36. AMITRIPTYLINE [Interacting]
     Active Substance: AMITRIPTYLINE
     Indication: Serotonin syndrome
  37. AMITRIPTYLINE [Interacting]
     Active Substance: AMITRIPTYLINE
  38. AMITRIPTYLINE [Interacting]
     Active Substance: AMITRIPTYLINE
  39. CODEINE [Interacting]
     Active Substance: CODEINE
     Indication: Analgesic therapy
     Dosage: 30 MILLIGRAM, 4/DAY
     Route: 048
     Dates: start: 20110615, end: 20110723
  40. CODEINE [Interacting]
     Active Substance: CODEINE
     Indication: Serotonin syndrome
     Dosage: 30 MILLIGRAM, 4/DAY
     Route: 065
     Dates: start: 2008
  41. CODEINE [Interacting]
     Active Substance: CODEINE
     Dosage: 30 MILLIGRAM, 4/DAY
     Route: 065
     Dates: start: 2002
  42. CODEINE [Interacting]
     Active Substance: CODEINE
     Dosage: UNK
     Route: 048
     Dates: start: 2008, end: 2008
  43. CODEINE [Interacting]
     Active Substance: CODEINE
     Dosage: UNK
     Route: 048
     Dates: start: 20110224, end: 20110410
  44. CODEINE [Interacting]
     Active Substance: CODEINE
     Dosage: UNK
     Route: 048
     Dates: start: 2002, end: 2002
  45. DIAZEPAM [Interacting]
     Active Substance: DIAZEPAM
     Indication: Muscle spasms
     Dosage: 8 MILLIGRAM, 4/DAY
     Route: 048
     Dates: start: 20110725
  46. DIAZEPAM [Interacting]
     Active Substance: DIAZEPAM
     Indication: Serotonin syndrome
     Dosage: 5 MILLIGRAM, 4/DAY
     Route: 048
     Dates: start: 20110725
  47. DIAZEPAM [Interacting]
     Active Substance: DIAZEPAM
  48. DOMPERIDONE [Suspect]
     Active Substance: DOMPERIDONE
     Indication: Product used for unknown indication
     Dosage: UNK
     Route: 065
  49. DOMPERIDONE [Suspect]
     Active Substance: DOMPERIDONE
     Dosage: UNK
     Route: 048
     Dates: start: 20100923, end: 20101108
  50. DOMPERIDONE [Suspect]
     Active Substance: DOMPERIDONE
     Dosage: UNK
     Route: 065
  51. OMEPRAZOLE [Interacting]
     Active Substance: OMEPRAZOLE
     Indication: Dyspepsia
     Dosage: 20 MILLIGRAM, 1/DAY
     Route: 065
     Dates: start: 20110525
  52. OMEPRAZOLE [Interacting]
     Active Substance: OMEPRAZOLE
     Dosage: 20 MILLIGRAM
     Route: 048
  53. PHOSPHORUS [Interacting]
     Active Substance: PHOSPHORUS
     Indication: Product used for unknown indication
     Dosage: UNK
     Route: 065
  54. PHOSPHORUS [Interacting]
     Active Substance: PHOSPHORUS
     Dosage: UNK
     Route: 065
  55. PAROXETINE [Interacting]
     Active Substance: PAROXETINE
     Indication: Depression
     Dosage: 40 MILLIGRAM
     Route: 048
     Dates: start: 19990801, end: 20110706
  56. PAROXETINE [Interacting]
     Active Substance: PAROXETINE
     Indication: Post-traumatic stress disorder
     Dosage: UNK
     Route: 048
     Dates: start: 1996
  57. PAROXETINE [Interacting]
     Active Substance: PAROXETINE
     Dosage: 60 MILLIGRAM, 3/DAY
     Route: 048
     Dates: start: 1997
  58. PAROXETINE [Interacting]
     Active Substance: PAROXETINE
     Dosage: 60 MILLIGRAM
     Route: 048
     Dates: start: 19990801, end: 201105
  59. PAROXETINE [Interacting]
     Active Substance: PAROXETINE
     Dosage: 40 MILLIGRAM
     Route: 048
     Dates: start: 201105, end: 20110706
  60. PAROXETINE [Interacting]
     Active Substance: PAROXETINE
     Dosage: 60 MILLIGRAM
     Route: 048
     Dates: start: 1997, end: 201105

REACTIONS (87)
  - H1N1 influenza [Unknown]
  - Swollen tongue [Unknown]
  - Blood sodium decreased [Unknown]
  - Contusion [Unknown]
  - Feeling of body temperature change [Unknown]
  - Cogwheel rigidity [Unknown]
  - Dystonia [Unknown]
  - Pallor [Unknown]
  - Paralysis [Unknown]
  - Muscle rigidity [Unknown]
  - Cyanosis [Unknown]
  - Eye pain [Unknown]
  - Depression [Unknown]
  - Suicidal ideation [Not Recovered/Not Resolved]
  - Incontinence [Not Recovered/Not Resolved]
  - Toxicity to various agents [Unknown]
  - Depersonalisation/derealisation disorder [Not Recovered/Not Resolved]
  - Illness [Unknown]
  - Muscle spasms [Unknown]
  - Pyrexia [Unknown]
  - Arthralgia [Unknown]
  - Drooling [Unknown]
  - Parosmia [Unknown]
  - Hypoaesthesia oral [Unknown]
  - Skin discolouration [Not Recovered/Not Resolved]
  - Musculoskeletal stiffness [Unknown]
  - Sensory loss [Unknown]
  - Aphasia [Not Recovered/Not Resolved]
  - Limb injury [Unknown]
  - Feeling of despair [Unknown]
  - Gastric pH decreased [Unknown]
  - Muscle disorder [Unknown]
  - Hypoaesthesia [Not Recovered/Not Resolved]
  - Schizophrenia [Unknown]
  - Neuroleptic malignant syndrome [Unknown]
  - Dissociation [Not Recovered/Not Resolved]
  - Dyskinesia [Unknown]
  - Psychotic disorder [Recovered/Resolved]
  - Menstrual disorder [Unknown]
  - Swelling face [Unknown]
  - Tinnitus [Unknown]
  - Derealisation [Not Recovered/Not Resolved]
  - Drug interaction [Unknown]
  - Drug interaction [Unknown]
  - Drug interaction [Unknown]
  - Drug interaction [Unknown]
  - Drug interaction [Unknown]
  - Drug interaction [Unknown]
  - Drug withdrawal syndrome [Unknown]
  - Serotonin syndrome [Not Recovered/Not Resolved]
  - Agitation [Unknown]
  - Disturbance in attention [Unknown]
  - Seizure [Unknown]
  - Anxiety [Unknown]
  - Speech disorder [Unknown]
  - Drug interaction [Not Recovered/Not Resolved]
  - Delirium [Unknown]
  - Headache [Unknown]
  - Mood swings [Unknown]
  - Nightmare [Unknown]
  - Restlessness [Unknown]
  - Sleep disorder [Unknown]
  - Hyperhidrosis [Unknown]
  - Urinary retention [Unknown]
  - Tachycardia [Unknown]
  - Fatigue [Unknown]
  - Visual impairment [Unknown]
  - Asthenia [Unknown]
  - Vomiting [Unknown]
  - Confusional state [Not Recovered/Not Resolved]
  - Dizziness [Unknown]
  - Paraesthesia [Unknown]
  - Heart rate increased [Unknown]
  - Therapeutic product ineffective [Unknown]
  - Gait disturbance [Unknown]
  - Hallucination [Unknown]
  - Balance disorder [Unknown]
  - Hallucinations, mixed [Unknown]
  - Vision blurred [Unknown]
  - Pruritus [Unknown]
  - Decreased appetite [Unknown]
  - Disorientation [Not Recovered/Not Resolved]
  - Somnolence [Not Recovered/Not Resolved]
  - Emotional disorder [Unknown]
  - Diarrhoea [Unknown]
  - Mydriasis [Unknown]
  - Off label use [Unknown]

NARRATIVE: CASE EVENT DATE: 20080101
